FAERS Safety Report 7267910-1 (Version None)
Quarter: 2011Q1

REPORT INFORMATION
  Report Type: 
  Country: None (occurrence: None)
  Receive Date: 20110201
  Receipt Date: 20101222
  Transmission Date: 20110831
  Serious: Yes (Death, Other)
  Sender: FDA-Public Use
  Company Number: US-BAXTER-2010BH003518

PATIENT
  Age: 71 Year
  Sex: Female

DRUGS (8)
  1. PROCARDIA XL [Concomitant]
     Indication: PRODUCT USED FOR UNKNOWN INDICATION
  2. HEPARIN SODIUM INJECTION [Suspect]
     Indication: PRODUCT USED FOR UNKNOWN INDICATION
     Route: 010
     Dates: start: 20080311
  3. ACETYLSALICYLIC ACID SRT [Concomitant]
     Indication: PRODUCT USED FOR UNKNOWN INDICATION
  4. LISINOPRIL [Concomitant]
     Indication: PRODUCT USED FOR UNKNOWN INDICATION
  5. MINOXIDIL [Concomitant]
     Indication: PRODUCT USED FOR UNKNOWN INDICATION
  6. LOPRESSOR [Concomitant]
     Indication: PRODUCT USED FOR UNKNOWN INDICATION
  7. COLACE [Concomitant]
     Indication: PRODUCT USED FOR UNKNOWN INDICATION
  8. ACETYLSALICYLIC ACID SRT [Concomitant]

REACTIONS (21)
  - SYNCOPE [None]
  - RASH [None]
  - ABDOMINAL DISTENSION [None]
  - CARDIO-RESPIRATORY ARREST [None]
  - SMALL INTESTINAL OBSTRUCTION [None]
  - DISSEMINATED INTRAVASCULAR COAGULATION [None]
  - NAUSEA [None]
  - DYSPNOEA [None]
  - CARDIAC FAILURE CONGESTIVE [None]
  - PNEUMONIA [None]
  - HYPOGLYCAEMIA [None]
  - FLUSHING [None]
  - ABDOMINAL PAIN [None]
  - CHEST DISCOMFORT [None]
  - THROMBOCYTOPENIA [None]
  - HYPOTENSION [None]
  - PYREXIA [None]
  - URTICARIA [None]
  - HYPERHIDROSIS [None]
  - DIZZINESS [None]
  - CHILLS [None]
